FAERS Safety Report 4582349-5 (Version None)
Quarter: 2005Q1

REPORT INFORMATION
  Report Type: 
  Country: None (occurrence: None)
  Receive Date: 20050118
  Receipt Date: 20040827
  Transmission Date: 20050727
  Serious: Yes (Life-Threatening)
  Sender: FDA-Public Use
  Company Number: 378837

PATIENT
  Age: 82 Year
  Sex: Female
  Weight: 32 kg

DRUGS (6)
  1. ROCEPHIN [Suspect]
     Indication: ENTEROBACTER INFECTION
     Dosage: 2 GRAM DAILY INTRAVENOUS
     Route: 042
     Dates: start: 20040329, end: 20040331
  2. POLARAMINE [Suspect]
     Dosage: 2 MG 3 PER 1 DAY ORAL
     Route: 048
     Dates: start: 20040328, end: 20040330
  3. AMIKIN [Suspect]
     Indication: ENTEROBACTER INFECTION
     Dosage: 480 MG DAILY INTRAVENOUS
     Route: 042
     Dates: start: 20040329, end: 20040331
  4. PRIMPERAN TAB [Suspect]
     Dosage: 2 PER 1 DAY INTRAVENOUS
     Route: 042
     Dates: start: 20040328, end: 20040328
  5. OMEPRAZOLE [Concomitant]
  6. PERFALGAN (ACETAMINOPHEN) [Concomitant]

REACTIONS (2)
  - LEUKOPENIA [None]
  - NEUTROPENIA [None]
